FAERS Safety Report 23952199 (Version 1)
Quarter: 2024Q2

REPORT INFORMATION
  Report Type: Report from Study
  Country: US (occurrence: US)
  Receive Date: 20240607
  Receipt Date: 20240607
  Transmission Date: 20240716
  Serious: Yes (Other)
  Sender: FDA-Public Use
  Company Number: US-ABBVIE-5787380

PATIENT
  Sex: Female

DRUGS (1)
  1. HUMIRA [Suspect]
     Active Substance: ADALIMUMAB
     Indication: Product used for unknown indication
     Route: 058
     Dates: start: 20240430

REACTIONS (8)
  - Coronary artery occlusion [Not Recovered/Not Resolved]
  - Pain [Recovering/Resolving]
  - Oedema peripheral [Not Recovered/Not Resolved]
  - Arthritis [Recovering/Resolving]
  - Dysphagia [Not Recovered/Not Resolved]
  - Swelling [Not Recovered/Not Resolved]
  - Nervous system disorder [Unknown]
  - Insomnia [Unknown]

NARRATIVE: CASE EVENT DATE: 20240101
